FAERS Safety Report 9206238 (Version 1)
Quarter: 2013Q2

REPORT INFORMATION
  Report Type: Spontaneous
  Country: US (occurrence: US)
  Receive Date: 20130403
  Receipt Date: 20130403
  Transmission Date: 20140414
  Serious: No
  Sender: FDA-Public Use
  Company Number: US-PFIZER INC-2013102876

PATIENT
  Age: 76 Year
  Sex: Male
  Weight: 78.91 kg

DRUGS (1)
  1. VIAGRA [Suspect]
     Indication: ERECTILE DYSFUNCTION
     Dosage: 25 MG, 2X/WEEK
     Route: 048
     Dates: start: 2003

REACTIONS (2)
  - Feeling abnormal [Unknown]
  - Drug ineffective [Unknown]
